FAERS Safety Report 9630093 (Version 1)
Quarter: 2013Q4

REPORT INFORMATION
  Report Type: Spontaneous
  Country: US (occurrence: US)
  Receive Date: 20131017
  Receipt Date: 20131017
  Transmission Date: 20140711
  Serious: No
  Sender: FDA-Public Use
  Company Number: US-009507513-1307USA010333

PATIENT
  Sex: Female

DRUGS (1)
  1. CLARITIN-D [Suspect]
     Indication: PRODUCT USED FOR UNKNOWN INDICATION
     Dosage: 10 MG, QD
     Route: 048

REACTIONS (7)
  - Hypotension [Unknown]
  - Chest pain [Unknown]
  - Chest discomfort [Unknown]
  - Lethargy [Unknown]
  - Abdominal discomfort [Unknown]
  - Nervousness [Unknown]
  - Dizziness [Unknown]
